FAERS Safety Report 9915620 (Version 1)
Quarter: 2014Q1

REPORT INFORMATION
  Report Type: Report from Study
  Country: US (occurrence: US)
  Receive Date: 20140221
  Receipt Date: 20140221
  Transmission Date: 20141002
  Serious: Yes (Other)
  Sender: FDA-Public Use
  Company Number: US-ROCHE-1335493

PATIENT
  Age: 59 Year
  Sex: Female

DRUGS (14)
  1. LUCENTIS [Suspect]
     Indication: DIABETIC RETINOPATHY
     Route: 050
     Dates: start: 20110706
  2. LUCENTIS [Suspect]
     Indication: DIABETIC RETINAL OEDEMA
     Route: 050
     Dates: start: 20110803
  3. LUCENTIS [Suspect]
     Route: 050
     Dates: start: 20110907
  4. LUCENTIS [Suspect]
     Route: 050
     Dates: start: 20111005
  5. LUCENTIS [Suspect]
     Route: 050
     Dates: start: 20111102
  6. LUCENTIS [Suspect]
     Route: 050
     Dates: start: 20111130
  7. LUCENTIS [Suspect]
     Route: 050
     Dates: start: 20111214
  8. LUCENTIS [Suspect]
     Route: 050
     Dates: start: 20120111
  9. LUCENTIS [Suspect]
     Route: 050
     Dates: start: 20120222
  10. AVASTIN [Suspect]
     Indication: PRODUCT USED FOR UNKNOWN INDICATION
     Route: 050
  11. AKTEN [Concomitant]
  12. BETADINE [Concomitant]
  13. TETRACAINE [Concomitant]
  14. ZYMAR [Concomitant]

REACTIONS (5)
  - Ocular hyperaemia [Unknown]
  - Visual acuity reduced [Unknown]
  - Glaucoma [Unknown]
  - Cataract nuclear [Unknown]
  - Lacrimation increased [Unknown]
